FAERS Safety Report 5027952-3 (Version None)
Quarter: 2006Q2

REPORT INFORMATION
  Report Type: 
  Country: None (occurrence: None)
  Receive Date: 20060609
  Receipt Date: 20060526
  Transmission Date: 20061013
  Serious: Yes (Other)
  Sender: FDA-Public Use
  Company Number: 2006US-02445

PATIENT
  Age: 31 Year
  Sex: Female

DRUGS (2)
  1. ISOTRETINOIN [Suspect]
     Dosage: 40 MG
     Dates: start: 20060131
  2. BIRTH CONTROL PILLS [Concomitant]

REACTIONS (2)
  - DRUG EXPOSURE DURING PREGNANCY [None]
  - PREGNANCY [None]
